FAERS Safety Report 5083917-7 (Version None)
Quarter: 2006Q3

REPORT INFORMATION
  Report Type: 
  Country: None (occurrence: None)
  Receive Date: 20060727
  Receipt Date: 20060410
  Transmission Date: 20061208
  Serious: Yes (Other)
  Sender: FDA-Public Use
  Company Number: 2006050816

PATIENT
  Age: 73 Year
  Sex: Male
  Weight: 107.5025 kg

DRUGS (4)
  1. LYRICA [Suspect]
     Indication: NEUROPATHY
     Dosage: 50 MG (50 MG, 1 IN 1 D), ORAL
     Route: 048
     Dates: start: 20060401, end: 20060401
  2. ADVIL [Suspect]
     Indication: NEUROPATHY
     Dates: start: 20060401
  3. NORVASC [Concomitant]
  4. TRIAMTERENE (TRIAMTERENE) [Concomitant]

REACTIONS (2)
  - BACK PAIN [None]
  - UNEVALUABLE EVENT [None]
